FAERS Safety Report 6965784-7 (Version None)
Quarter: 2010Q3

REPORT INFORMATION
  Report Type: 
  Country: None (occurrence: None)
  Receive Date: 20100903
  Receipt Date: 20100825
  Transmission Date: 20110219
  Serious: Yes (Hospitalization, Disabling)
  Sender: FDA-Public Use
  Company Number: GB-ASTRAZENECA-2010SE39960

PATIENT
  Age: 79 Year
  Sex: Male
  Weight: 110 kg

DRUGS (12)
  1. ESOMEPRAZOLE MAGNESIUM [Suspect]
     Indication: GASTRIC ULCER
     Route: 048
     Dates: start: 20100812
  2. ATENOLOL [Concomitant]
  3. LISINOPRIL [Concomitant]
  4. ROSUVASTATIN [Concomitant]
  5. ALLOPURINOL [Concomitant]
  6. AMLODIPINE [Concomitant]
  7. ASPIRIN [Concomitant]
  8. DUTASTERIDE [Concomitant]
  9. FUROSEMIDE [Concomitant]
  10. QUININE [Concomitant]
  11. TEMAZEPAM [Concomitant]
  12. TRAMADOL HCL [Concomitant]

REACTIONS (4)
  - DYSPNOEA [None]
  - FATIGUE [None]
  - HYPOMAGNESAEMIA [None]
  - TREMOR [None]
